FAERS Safety Report 8566671 (Version 2)
Quarter: 2015Q1

REPORT INFORMATION
  Report Type: Spontaneous
  Country: US (occurrence: US)
  Receive Date: 20120517
  Receipt Date: 20150325
  Transmission Date: 20150721
  Serious: Yes (Other)
  Sender: FDA-Public Use
  Company Number: US-ROCHE-783552

PATIENT
  Sex: Female
  Weight: 56.75 kg

DRUGS (2)
  1. ACCUTANE [Suspect]
     Active Substance: ISOTRETINOIN
     Route: 065
     Dates: start: 19980302, end: 19990913
  2. ACCUTANE [Suspect]
     Active Substance: ISOTRETINOIN
     Indication: ACNE CYSTIC
     Route: 065
     Dates: start: 19990316, end: 19990913

REACTIONS (4)
  - Proctitis ulcerative [Unknown]
  - Stress [Unknown]
  - Inflammatory bowel disease [Unknown]
  - Tinea pedis [Unknown]

NARRATIVE: CASE EVENT DATE: 2001
